FAERS Safety Report 7672671-8 (Version None)
Quarter: 2011Q3

REPORT INFORMATION
  Report Type: 
  Country: None (occurrence: None)
  Receive Date: 20110809
  Receipt Date: 20110805
  Transmission Date: 20111222
  Serious: Yes (Hospitalization)
  Sender: FDA-Public Use
  Company Number: US-ABBOTT-11P-163-0844540-00

PATIENT
  Sex: Male
  Weight: 40.2 kg

DRUGS (6)
  1. BUDESONIDE [Concomitant]
     Indication: PRODUCT USED FOR UNKNOWN INDICATION
  2. REMICADE [Suspect]
     Dates: start: 20080411
  3. REMICADE [Suspect]
     Indication: CROHN'S DISEASE
     Route: 042
     Dates: start: 20060907
  4. HUMIRA [Suspect]
     Dates: start: 20101103
  5. HUMIRA [Suspect]
     Dates: start: 20110330, end: 20110601
  6. HUMIRA [Suspect]
     Indication: PRODUCT USED FOR UNKNOWN INDICATION
     Dates: start: 20081203

REACTIONS (2)
  - WEIGHT DECREASED [None]
  - CROHN'S DISEASE [None]
